FAERS Safety Report 9348388 (Version 1)
Quarter: 2013Q2

REPORT INFORMATION
  Report Type: Spontaneous
  Country: US (occurrence: US)
  Receive Date: 20130614
  Receipt Date: 20130614
  Transmission Date: 20140414
  Serious: Yes (Other)
  Sender: FDA-Public Use
  Company Number: US-BRISTOL-MYERS SQUIBB COMPANY-18981738

PATIENT
  Age: 56 Year
  Sex: Female

DRUGS (23)
  1. ORENCIA [Suspect]
  2. ENBREL [Suspect]
     Indication: RHEUMATOID ARTHRITIS
  3. SULFASALAZINE [Suspect]
  4. METHOTREXATE TABS [Suspect]
     Dosage: REGIMEN 2: 25MG QWK
     Route: 048
  5. RITUXAN [Suspect]
  6. ACTEMRA [Suspect]
  7. HYDROXYCHLOROQUINE SULFATE [Suspect]
     Dosage: TABS
  8. PREDNISONE [Concomitant]
     Dosage: TABS?DOSE REDUCED TO 20MG WEEKLY
  9. PRILOSEC [Concomitant]
     Dosage: CAPSULE
  10. OXYCODONE [Concomitant]
     Dosage: TABS
  11. GLUCOSAMINE [Concomitant]
     Dosage: CAPS
  12. ESTRADIOL [Concomitant]
     Dosage: TABS
  13. CHONDROITIN [Concomitant]
     Dosage: CAPS
  14. METOPROLOL TARTRATE [Concomitant]
  15. MULTIVITAMINS [Concomitant]
     Dosage: CAPSULE
  16. VITAMIN D3 [Concomitant]
     Dosage: TABS
  17. ACIDOPHILUS [Concomitant]
     Dosage: TABS
  18. PECTIN [Concomitant]
     Dosage: TABS
  19. FOLIC ACID [Concomitant]
     Dosage: TABS
  20. LEUCOVORIN CALCIUM TABS [Concomitant]
  21. CELEBREX [Concomitant]
  22. REMICADE [Concomitant]
  23. HUMIRA [Concomitant]

REACTIONS (12)
  - Diabetes mellitus [Unknown]
  - Rash [Unknown]
  - Alopecia [Unknown]
  - Abdominal discomfort [Unknown]
  - Laceration [Unknown]
  - Liver function test abnormal [Unknown]
  - Abdominal distension [Unknown]
  - Hypertension [Unknown]
  - Weight decreased [Unknown]
  - Skin fragility [Unknown]
  - Contusion [Unknown]
  - Drug ineffective [Unknown]
